FAERS Safety Report 23311835 (Version 4)
Quarter: 2024Q1

REPORT INFORMATION
  Report Type: Other
  Country: US (occurrence: None)
  Receive Date: 20231219
  Receipt Date: 20240325
  Transmission Date: 20240410
  Serious: Yes (Life-Threatening, Hospitalization)
  Sender: FDA-Public Use
  Company Number: US-ROCHE-3472989

PATIENT
  Age: 63 Year
  Sex: Female

DRUGS (27)
  1. OCREVUS [Suspect]
     Active Substance: OCRELIZUMAB
     Indication: Relapsing-remitting multiple sclerosis
     Dosage: DATE OF TREATMENT: 03/NOV/2022?ON 03/MAY/2023, THE PATIENT RECEIVED THE LAST DOSE OF OCREVUS
     Route: 042
     Dates: start: 20220314, end: 202210
  2. OCREVUS [Suspect]
     Active Substance: OCRELIZUMAB
     Route: 042
     Dates: start: 202302, end: 20230503
  3. OCREVUS [Suspect]
     Active Substance: OCRELIZUMAB
     Dosage: LAST DOSE /MAY/2023
     Route: 042
     Dates: start: 20190827
  4. NUVIGIL [Concomitant]
     Active Substance: ARMODAFINIL
  5. ABILIFY [Concomitant]
     Active Substance: ARIPIPRAZOLE
  6. ASPIRIN [Concomitant]
     Active Substance: ASPIRIN
  7. PREDNISOLONE [Concomitant]
     Active Substance: PREDNISOLONE
  8. LITHIUM [Concomitant]
     Active Substance: LITHIUM
  9. LAMICTAL [Concomitant]
     Active Substance: LAMOTRIGINE
  10. ARICEPT [Concomitant]
     Active Substance: DONEPEZIL HYDROCHLORIDE
  11. TIZANIDINE [Concomitant]
     Active Substance: TIZANIDINE
  12. COSENTYX [Concomitant]
     Active Substance: SECUKINUMAB
  13. SYNTHROID [Concomitant]
     Active Substance: LEVOTHYROXINE SODIUM
  14. ATORVASTATIN [Concomitant]
     Active Substance: ATORVASTATIN
  15. LOSARTAN [Concomitant]
     Active Substance: LOSARTAN
  16. TOPAMAX [Concomitant]
     Active Substance: TOPIRAMATE
  17. VITAMIN B12 [Concomitant]
     Active Substance: CYANOCOBALAMIN
  18. VITAMIN B COMPLEX [Concomitant]
     Active Substance: CYANOCOBALAMIN\DEXPANTHENOL\NIACINAMIDE\PYRIDOXINE HYDROCHLORIDE\RIBOFLAVIN 5^-PHOSPHATE SODIUM\THIA
  19. BYSTOLIC [Concomitant]
     Active Substance: NEBIVOLOL HYDROCHLORIDE
  20. GLUCOSAMINE [Concomitant]
     Active Substance: GLUCOSAMINE
  21. LIDOCAINE [Concomitant]
     Active Substance: LIDOCAINE
  22. ADDERALL [Concomitant]
     Active Substance: AMPHETAMINE ASPARTATE\AMPHETAMINE SULFATE\DEXTROAMPHETAMINE SACCHARATE\DEXTROAMPHETAMINE SULFATE
  23. ACETAMINOPHEN [Concomitant]
     Active Substance: ACETAMINOPHEN
  24. ASPIRIN [Concomitant]
     Active Substance: ASPIRIN
  25. FLUTICASONE [Concomitant]
     Active Substance: FLUTICASONE
  26. MELOXICAM [Concomitant]
     Active Substance: MELOXICAM
  27. TECFIDERA [Concomitant]
     Active Substance: DIMETHYL FUMARATE

REACTIONS (16)
  - Cytomegalovirus infection [Recovering/Resolving]
  - Diarrhoea [Recovered/Resolved]
  - Dehydration [Recovered/Resolved]
  - Asthenia [Unknown]
  - Loss of consciousness [Recovered/Resolved]
  - Perforation [Recovered/Resolved]
  - Urinary tract infection [Not Recovered/Not Resolved]
  - Hernia [Not Recovered/Not Resolved]
  - Palpitations [Recovered/Resolved]
  - Blood pressure increased [Recovered/Resolved]
  - Flushing [Recovered/Resolved]
  - Bladder disorder [Unknown]
  - Nephrolithiasis [Unknown]
  - Intervertebral disc degeneration [Unknown]
  - Psoriasis [Unknown]
  - Hypercoagulation [Unknown]

NARRATIVE: CASE EVENT DATE: 20230201
